FAERS Safety Report 15449755 (Version 1)
Quarter: 2018Q4

REPORT INFORMATION
  Report Type: Spontaneous
  Country: US (occurrence: US)
  Receive Date: 20181001
  Receipt Date: 20181001
  Transmission Date: 20190204
  Serious: Yes (Other)
  Sender: FDA-Public Use
  Company Number: US-AMGEN-USASP2018134550

PATIENT
  Sex: Female

DRUGS (3)
  1. ADEFOVIR [Concomitant]
     Active Substance: ADEFOVIR
     Indication: PRODUCT USED FOR UNKNOWN INDICATION
     Dosage: UNK
     Route: 065
  2. ENBREL [Suspect]
     Active Substance: ETANERCEPT
     Indication: RHEUMATOID ARTHRITIS
     Dosage: UNK
     Route: 065
  3. XELJANZ XR [Suspect]
     Active Substance: TOFACITINIB CITRATE
     Indication: RHEUMATOID ARTHRITIS
     Dosage: 11 MG, QD
     Route: 048
     Dates: start: 201712

REACTIONS (7)
  - Rheumatoid arthritis [Unknown]
  - Drug hypersensitivity [Unknown]
  - Memory impairment [Unknown]
  - Urinary tract infection [Unknown]
  - Nasopharyngitis [Unknown]
  - Headache [Unknown]
  - Weight increased [Unknown]

NARRATIVE: CASE EVENT DATE: 2018
